FAERS Safety Report 15849067 (Version 1)
Quarter: 2019Q1

REPORT INFORMATION
  Report Type: Other
  Country: FR (occurrence: FR)
  Receive Date: 20190121
  Receipt Date: 20190121
  Transmission Date: 20190417
  Serious: Yes (Death)
  Sender: FDA-Public Use
  Company Number: FR-EMCURE PHARMS-2018HTG00295

PATIENT

DRUGS (4)
  1. BICNU [Suspect]
     Active Substance: CARMUSTINE
     Indication: B-CELL LYMPHOMA RECURRENT
     Route: 041
     Dates: start: 20180529, end: 20180529
  2. CYTARABINE (ACCORD) [Suspect]
     Active Substance: CYTARABINE
     Indication: B-CELL LYMPHOMA RECURRENT
     Dosage: 100 MG/M2, 1X/DAY
     Route: 041
     Dates: start: 20180530, end: 20180601
  3. ALKERAN [Suspect]
     Active Substance: MELPHALAN
     Indication: B-CELL LYMPHOMA RECURRENT
     Dosage: 140 MG/M2; IN TOTAL
     Route: 041
     Dates: start: 20180602, end: 20180602
  4. ETOPOSIDE (MYLAN) [Suspect]
     Active Substance: ETOPOSIDE
     Indication: B-CELL LYMPHOMA RECURRENT
     Dosage: 200 MG/M2, 1X/DAY
     Route: 041
     Dates: start: 20180530, end: 20180601

REACTIONS (2)
  - Interstitial lung disease [Fatal]
  - Acute respiratory distress syndrome [Fatal]

NARRATIVE: CASE EVENT DATE: 20180702
